FAERS Safety Report 5093062-2 (Version None)
Quarter: 2006Q3

REPORT INFORMATION
  Report Type: 
  Country: None (occurrence: None)
  Receive Date: 20060830
  Receipt Date: 20060822
  Transmission Date: 20061208
  Serious: Yes (Hospitalization)
  Sender: FDA-Public Use
  Company Number: DE-SANOFI-SYNTHELABO-A04200600834

PATIENT
  Age: 68 Year
  Sex: Female

DRUGS (2)
  1. CAPTOPRIL [Concomitant]
     Indication: CORONARY ARTERY DISEASE
     Route: 048
  2. CLOPIDOGREL [Suspect]
     Indication: CORONARY ARTERY DISEASE
     Route: 048

REACTIONS (1)
  - PUSTULAR PSORIASIS [None]
